FAERS Safety Report 15413803 (Version 10)
Quarter: 2020Q3

REPORT INFORMATION
  Report Type: Report from Study
  Country: SA (occurrence: SA)
  Receive Date: 20180921
  Receipt Date: 20190523
  Transmission Date: 20201104
  Serious: Yes (Other)
  Sender: FDA-Public Use
  Company Number: SA-ROCHE-2187127

PATIENT
  Age: 28 Year
  Sex: Male
  Weight: 58.2 kg

DRUGS (2)
  1. EMICIZUMAB. [Suspect]
     Active Substance: EMICIZUMAB
     Indication: FACTOR VIII DEFICIENCY
     Dosage: DATE OF MOST RECENT DOSE OF EMICIZUMAB PRIOR TO SAE ONSET: 12/SEP/2018: 1.5 MG/KG?INITIAL WEEKLY DOS
     Route: 058
     Dates: start: 20180801
  2. MORPHINE [Concomitant]
     Active Substance: MORPHINE
     Route: 042

REACTIONS (1)
  - Nephrotic syndrome [Not Recovered/Not Resolved]

NARRATIVE: CASE EVENT DATE: 20180916
